FAERS Safety Report 10159372 (Version 3)
Quarter: 2014Q3

REPORT INFORMATION
  Report Type: Spontaneous
  Country: NL (occurrence: NL)
  Receive Date: 20140508
  Receipt Date: 20140707
  Transmission Date: 20150326
  Serious: Yes (Hospitalization)
  Sender: FDA-Public Use
  Company Number: NL-ROCHE-1392360

PATIENT
  Age: 18 Year
  Sex: Male

DRUGS (6)
  1. VIGABATRINE [Concomitant]
     Active Substance: VIGABATRIN
     Dosage: 2 KEER PER DAG 2.5 STUK(S)
     Route: 048
     Dates: start: 1997
  2. FRISIUM [Concomitant]
     Active Substance: CLOBAZAM
     Dosage: 1 KEER PER DAG 1 STUK(S)
     Route: 048
     Dates: start: 20140423
  3. LEVETIRACETAM. [Concomitant]
     Active Substance: LEVETIRACETAM
     Dosage: 2 KEER PER DAG 2 STUK(S)
     Route: 048
     Dates: start: 2005
  4. RIVOTRIL [Suspect]
     Active Substance: CLONAZEPAM
     Dosage: BLUE DROPS
     Route: 002
     Dates: start: 20140428, end: 20140429
  5. RIVOTRIL [Suspect]
     Active Substance: CLONAZEPAM
     Indication: EPILEPSY
     Dosage: 0.25% 10ML, 2X 10 ML, 2.5 MG/ML
     Route: 002
     Dates: start: 2000
  6. PHENYTOIN. [Concomitant]
     Active Substance: PHENYTOIN

REACTIONS (4)
  - Status epilepticus [Not Recovered/Not Resolved]
  - Drug ineffective [Unknown]
  - Off label use [Unknown]
  - Product quality issue [Unknown]

NARRATIVE: CASE EVENT DATE: 20140428
